FAERS Safety Report 15651787 (Version 3)
Quarter: 2019Q2

REPORT INFORMATION
  Report Type: Spontaneous
  Country: US (occurrence: US)
  Receive Date: 20181123
  Receipt Date: 20190415
  Transmission Date: 20190711
  Serious: Yes (Other)
  Sender: FDA-Public Use
  Company Number: US-ASTRAZENECA-2018SF52211

PATIENT
  Age: 20996 Day
  Sex: Male
  Weight: 99.3 kg

DRUGS (20)
  1. LAMICTAL [Concomitant]
     Active Substance: LAMOTRIGINE
  2. LAMOTRIGINE. [Concomitant]
     Active Substance: LAMOTRIGINE
     Dates: start: 20120605
  3. GABAPENTIN. [Concomitant]
     Active Substance: GABAPENTIN
     Dates: start: 20120605
  4. GLIPIZIDE. [Concomitant]
     Active Substance: GLIPIZIDE
  5. NEXIUM [Suspect]
     Active Substance: ESOMEPRAZOLE MAGNESIUM
     Indication: HERNIA
     Route: 048
     Dates: start: 1998, end: 2013
  6. LISINOPRIL. [Concomitant]
     Active Substance: LISINOPRIL
     Dates: start: 20120605
  7. TIAGABINE [Concomitant]
     Active Substance: TIAGABINE
  8. LYRICA [Concomitant]
     Active Substance: PREGABALIN
  9. MULTIVITAMINS [Concomitant]
     Active Substance: VITAMINS
  10. CLONAZEPAM. [Concomitant]
     Active Substance: CLONAZEPAM
     Dates: start: 20120605
  11. ALPRAZOLAM. [Concomitant]
     Active Substance: ALPRAZOLAM
  12. METFORMIN [Concomitant]
     Active Substance: METFORMIN HYDROCHLORIDE
     Dates: start: 20120712
  13. DOVONEX [Concomitant]
     Active Substance: CALCIPOTRIENE
     Dates: start: 20120605
  14. NAPROXEN. [Concomitant]
     Active Substance: NAPROXEN
     Dates: start: 20120607
  15. METFORMIN [Concomitant]
     Active Substance: METFORMIN HYDROCHLORIDE
     Dates: start: 20121008
  16. CALCIPOTRIENE. [Concomitant]
     Active Substance: CALCIPOTRIENE
     Dates: start: 20130801
  17. NEXIUM [Suspect]
     Active Substance: ESOMEPRAZOLE MAGNESIUM
     Indication: HERNIA
     Dosage: 40 MG
     Route: 048
     Dates: start: 20120606
  18. RISPERDAL [Concomitant]
     Active Substance: RISPERIDONE
  19. LOSARTAN. [Concomitant]
     Active Substance: LOSARTAN
  20. RISPERIDONE. [Concomitant]
     Active Substance: RISPERIDONE
     Dates: start: 20120703

REACTIONS (3)
  - Renal impairment [Unknown]
  - Chronic kidney disease [Not Recovered/Not Resolved]
  - Renal failure [Not Recovered/Not Resolved]

NARRATIVE: CASE EVENT DATE: 20160919
